FAERS Safety Report 8139486-8 (Version None)
Quarter: 2012Q1

REPORT INFORMATION
  Report Type: 
  Country: None (occurrence: None)
  Receive Date: 20120215
  Receipt Date: 20120207
  Transmission Date: 20120608
  Serious: Yes (Hospitalization)
  Sender: FDA-Public Use
  Company Number: BR-ABBOTT-12P-020-0892358-00

PATIENT
  Age: 71 Year
  Sex: Male

DRUGS (4)
  1. HUMIRA [Suspect]
  2. METHOTREXATE [Concomitant]
     Route: 030
     Dates: start: 20120110
  3. METHOTREXATE [Concomitant]
     Indication: PRODUCT USED FOR UNKNOWN INDICATION
     Route: 030
     Dates: end: 20111101
  4. HUMIRA [Suspect]
     Indication: PSORIASIS
     Dates: start: 20090101

REACTIONS (7)
  - PYREXIA [None]
  - PNEUMONIA [None]
  - NAIL PSORIASIS [None]
  - DERMATITIS EXFOLIATIVE [None]
  - PSORIASIS [None]
  - SKIN LESION [None]
  - PUSTULAR PSORIASIS [None]
